FAERS Safety Report 5289508-7 (Version None)
Quarter: 2007Q2

REPORT INFORMATION
  Report Type: 
  Country: None (occurrence: None)
  Receive Date: 20070406
  Receipt Date: 20070327
  Transmission Date: 20071010
  Serious: Yes (Other)
  Sender: FDA-Public Use
  Company Number: PHEH2007US03651

PATIENT

DRUGS (1)
  1. ENABLEX [Suspect]

REACTIONS (1)
  - URINE OUTPUT DECREASED [None]
